FAERS Safety Report 9142286 (Version 1)
Quarter: 2013Q1

REPORT INFORMATION
  Report Type: Spontaneous
  Country: DE (occurrence: DE)
  Receive Date: 20130305
  Receipt Date: 20130305
  Transmission Date: 20140127
  Serious: Yes (Other)
  Sender: FDA-Public Use
  Company Number: DE-BRISTOL-MYERS SQUIBB COMPANY-17424052

PATIENT
  Sex: Female
  Weight: 1.89 kg

DRUGS (3)
  1. METFORMIN HCL [Suspect]
     Route: 064
  2. MELPERONE HYDROCHLORIDE [Suspect]
     Route: 064
  3. VENLAFAXINE HYDROCHLORIDE [Suspect]
     Route: 064

REACTIONS (10)
  - Fallot^s tetralogy [Recovered/Resolved with Sequelae]
  - Congenital uterine anomaly [Not Recovered/Not Resolved]
  - Anal atresia [Not Recovered/Not Resolved]
  - Persistent cloaca [Not Recovered/Not Resolved]
  - Spine malformation [Not Recovered/Not Resolved]
  - Atrial septal defect [Recovered/Resolved with Sequelae]
  - Right aortic arch [Recovered/Resolved with Sequelae]
  - Persistent left superior vena cava [Recovered/Resolved with Sequelae]
  - Congenital absence of bile ducts [Unknown]
  - Maternal drugs affecting foetus [None]
